FAERS Safety Report 23162224 (Version 1)
Quarter: 2023Q4

REPORT INFORMATION
  Report Type: Spontaneous
  Country: JP (occurrence: JP)
  Receive Date: 20231109
  Receipt Date: 20231109
  Transmission Date: 20240109
  Serious: Yes (Hospitalization, Other)
  Sender: FDA-Public Use
  Company Number: JP-Eisai-202303024_LEN-EC_P_1

PATIENT
  Age: 71 Year
  Sex: Female

DRUGS (6)
  1. LENVIMA [Suspect]
     Active Substance: LENVATINIB
     Indication: Endometrial cancer
     Route: 048
     Dates: start: 202206
  2. LENVIMA [Suspect]
     Active Substance: LENVATINIB
     Route: 048
     Dates: start: 2022, end: 202209
  3. KEYTRUDA [Suspect]
     Active Substance: PEMBROLIZUMAB
     Indication: Endometrial cancer
     Route: 041
     Dates: start: 202206, end: 202207
  4. KEYTRUDA [Suspect]
     Active Substance: PEMBROLIZUMAB
     Route: 041
     Dates: start: 2022, end: 202209
  5. IRBESARTAN/AMLODIPINE BESILATE [Concomitant]
     Indication: Hypertension
     Dosage: IRBESARTAN:100MG/AMLODIPINE: 5MG (FREQUENCY UNKNOWN)
     Dates: end: 2022
  6. IRBESARTAN/AMLODIPINE BESILATE [Concomitant]
     Indication: Hypertension
     Dosage: DOSE INCREASED TO IRBESARTAN:100MG/AMLODIPINE: 10MG (FREQUENCY UNKNOWN)
     Dates: start: 2022

REACTIONS (4)
  - Hypophysitis [Recovering/Resolving]
  - Thyroiditis [Unknown]
  - Adrenal insufficiency [Recovering/Resolving]
  - Platelet count decreased [Recovering/Resolving]

NARRATIVE: CASE EVENT DATE: 20220701
